FAERS Safety Report 6559332-3 (Version None)
Quarter: 2010Q1

REPORT INFORMATION
  Report Type: 
  Country: None (occurrence: None)
  Receive Date: 20100129
  Receipt Date: 20100119
  Transmission Date: 20100710
  Serious: Yes (Death, Hospitalization, Other)
  Sender: FDA-Public Use
  Company Number: JP-ABBOTT-09P-087-0565181-00

PATIENT
  Sex: Female
  Weight: 44.6 kg

DRUGS (18)
  1. HUMIRA [Suspect]
     Indication: RHEUMATOID ARTHRITIS
     Route: 058
     Dates: start: 20081211, end: 20090220
  2. PREDNISOLONE [Suspect]
     Indication: LEUKOCYTOCLASTIC VASCULITIS
  3. PREDNISOLONE [Suspect]
     Route: 048
     Dates: start: 20090316
  4. PREDNISOLONE [Suspect]
     Dates: start: 20090320
  5. PREDNISOLONE [Suspect]
     Dates: start: 20090420
  6. METHOTREXATE [Concomitant]
     Indication: RHEUMATOID ARTHRITIS
     Dates: start: 19961001
  7. STEROID [Concomitant]
     Indication: DRUG USE FOR UNKNOWN INDICATION
  8. PREDNISOLONE [Concomitant]
     Indication: RHEUMATOID ARTHRITIS
     Route: 048
     Dates: end: 20090315
  9. SODIUM RISEDRONATE HYDRATE [Concomitant]
     Indication: OSTEOPOROSIS
  10. LOXOPROFEN SODIUM HYDRATE [Concomitant]
     Indication: RHEUMATOID ARTHRITIS
  11. MULTIPLE VITAMINS [Concomitant]
     Indication: HYPOVITAMINOSIS
     Route: 048
  12. FOLIC ACID [Concomitant]
     Indication: RHEUMATOID ARTHRITIS
     Route: 048
  13. LANSOPRAZOLE [Concomitant]
     Indication: GASTRIC ULCER
     Route: 048
  14. MINOCYCLINE HYDROCHLORIDE [Concomitant]
     Indication: ARTHRITIS BACTERIAL
     Route: 048
     Dates: start: 20080527
  15. MINOCYCLINE HYDROCHLORIDE [Concomitant]
     Indication: INFECTION PROPHYLAXIS
  16. NIFEDIPINE [Concomitant]
     Indication: HYPERTENSION
     Route: 048
  17. VALSARTAN [Concomitant]
     Indication: HYPERTENSION
     Route: 048
  18. DIFENIDOL HYDROCHLORIDE [Concomitant]
     Indication: DIZZINESS

REACTIONS (5)
  - ACUTE PRERENAL FAILURE [None]
  - LEUKOCYTOCLASTIC VASCULITIS [None]
  - PANCREATIC CYST [None]
  - PANCREATITIS ACUTE [None]
  - VASCULITIS [None]
